FAERS Safety Report 7970642-5 (Version None)
Quarter: 2011Q4

REPORT INFORMATION
  Report Type: 
  Country: None (occurrence: None)
  Receive Date: 20111212
  Receipt Date: 20111201
  Transmission Date: 20120403
  Serious: Yes (Other)
  Sender: FDA-Public Use
  Company Number: US-BAYER-2011-037121

PATIENT
  Age: 24 Year
  Sex: Female
  Weight: 45.351 kg

DRUGS (14)
  1. BENTYL [Concomitant]
  2. KRISTALOSE [Concomitant]
     Dosage: 20 MG, QD
  3. ADVAIR DISKUS 100/50 [Concomitant]
     Indication: DYSPNOEA
     Dosage: UNK UNK, PRN
  4. YAZ [Suspect]
     Dosage: UNK
     Dates: start: 20080101
  5. LIBRAX [Concomitant]
  6. PROMETHAZINE [Concomitant]
     Indication: NAUSEA
     Dosage: 25 MG, TID
     Route: 048
  7. NORCO [Concomitant]
     Indication: PAIN
     Dosage: UNK UNK, PRN
     Route: 048
  8. ALLEGRA [Concomitant]
     Route: 048
  9. AMITRIPTYLINE HCL [Concomitant]
  10. KAPIDEX [Concomitant]
  11. ASTELIN [Concomitant]
     Route: 045
  12. PROMETHAZINE [Concomitant]
     Indication: VOMITING
  13. ADDERALL 5 [Concomitant]
     Dosage: 20 MG, BID
     Route: 048
  14. DEXILANT [Concomitant]
     Dosage: 60 MG, UNK
     Route: 048

REACTIONS (5)
  - GALLBLADDER INJURY [None]
  - PAIN [None]
  - EMOTIONAL DISTRESS [None]
  - ANXIETY [None]
  - CHOLECYSTITIS CHRONIC [None]
